FAERS Safety Report 12092611 (Version 1)
Quarter: 2016Q1

REPORT INFORMATION
  Report Type: Spontaneous
  Country: US (occurrence: US)
  Receive Date: 20160219
  Receipt Date: 20160219
  Transmission Date: 20160526
  Serious: No
  Sender: FDA-Public Use
  Company Number: US-EMCURE PHARMACEUTICALS LIMITED-1048097

PATIENT
  Age: 74 Year
  Sex: Male

DRUGS (2)
  1. LEVOFLOXACIN. [Suspect]
     Active Substance: LEVOFLOXACIN
     Route: 042
     Dates: start: 20150910, end: 20150913
  2. LEVOFLOXACIN. [Suspect]
     Active Substance: LEVOFLOXACIN
     Route: 042
     Dates: start: 20150910, end: 20150913

REACTIONS (8)
  - Colitis [None]
  - Pruritus [None]
  - Loss of consciousness [None]
  - Diarrhoea [Unknown]
  - Muscle spasms [None]
  - Pain [None]
  - Cardiac disorder [None]
  - Urinary retention [None]

NARRATIVE: CASE EVENT DATE: 20151202
